FAERS Safety Report 7938840-4 (Version None)
Quarter: 2011Q4

REPORT INFORMATION
  Report Type: 
  Country: None (occurrence: None)
  Receive Date: 20111124
  Receipt Date: 20111121
  Transmission Date: 20120403
  Serious: No
  Sender: FDA-Public Use
  Company Number: US-BIOGENIDEC-2011BI044492

PATIENT
  Age: 19 Year
  Sex: Female

DRUGS (1)
  1. TYSABRI [Suspect]
     Indication: MULTIPLE SCLEROSIS
     Route: 042
     Dates: start: 20110909

REACTIONS (6)
  - HYPOAESTHESIA [None]
  - DIZZINESS [None]
  - HEADACHE [None]
  - BLEPHAROSPASM [None]
  - DRUG INEFFECTIVE [None]
  - TREMOR [None]
